FAERS Safety Report 16901022 (Version 3)
Quarter: 2020Q1

REPORT INFORMATION
  Report Type: Spontaneous
  Country: US (occurrence: US)
  Receive Date: 20191009
  Receipt Date: 20200101
  Transmission Date: 20200409
  Serious: No
  Sender: FDA-Public Use
  Company Number: US-ALKERMES INC.-ALK-2019-003293

PATIENT
  Age: 25 Year
  Sex: Male
  Weight: 68.27 kg

DRUGS (2)
  1. ARISTADA [Suspect]
     Active Substance: ARIPIPRAZOLE LAUROXIL
     Dosage: 662 MG, QMO
     Route: 030
     Dates: start: 20181101, end: 20181101
  2. ARISTADA [Suspect]
     Active Substance: ARIPIPRAZOLE LAUROXIL
     Indication: SCHIZOAFFECTIVE DISORDER BIPOLAR TYPE
     Dosage: 662 MG, QMO
     Route: 030
     Dates: start: 20191127

REACTIONS (8)
  - Asthenia [Recovering/Resolving]
  - Drug abuse [Not Recovered/Not Resolved]
  - Increased appetite [Not Recovered/Not Resolved]
  - Hyperphagia [Not Recovered/Not Resolved]
  - Libido increased [Not Recovered/Not Resolved]
  - Restless legs syndrome [Recovering/Resolving]
  - Memory impairment [Not Recovered/Not Resolved]
  - Fatigue [Not Recovered/Not Resolved]
